FAERS Safety Report 22592923 (Version 1)
Quarter: 2023Q2

REPORT INFORMATION
  Report Type: Report from Study
  Country: US (occurrence: US)
  Receive Date: 20230613
  Receipt Date: 20230613
  Transmission Date: 20230721
  Serious: Yes (Hospitalization, Other)
  Sender: FDA-Public Use
  Company Number: US-APIL-2308892US

PATIENT
  Age: 72 Year
  Sex: Male
  Weight: 175 kg

DRUGS (25)
  1. LINZESS [Suspect]
     Active Substance: LINACLOTIDE
     Indication: Product used for unknown indication
     Dosage: DAILY DOSE: 290.0 ?G
     Route: 048
  2. QULIPTA [Suspect]
     Active Substance: ATOGEPANT
     Indication: Migraine
     Dosage: DAILY DOSE: 60.0 MG
     Route: 048
     Dates: start: 202301
  3. MIDODRINE [Concomitant]
     Active Substance: MIDODRINE
     Indication: Product used for unknown indication
  4. ALPRAZOLAM [Concomitant]
     Active Substance: ALPRAZOLAM
     Indication: Anxiety
     Dosage: FOR THREE DAYS
     Route: 048
     Dates: start: 20230602
  5. ATORVASTATIN [Concomitant]
     Active Substance: ATORVASTATIN
     Indication: Blood cholesterol increased
     Dosage: 80 MG
     Route: 048
     Dates: start: 20230602
  6. HYDROMORPHONE [Concomitant]
     Active Substance: HYDROMORPHONE
     Indication: Pain
     Dosage: TIME INTERVAL: 0.33333333 DAYS: 2MG, AS NEEDED THREE TIMES DAILY?FOR THREE DAYS
     Route: 048
     Dates: start: 20230602
  7. OMEPRAZOLE [Concomitant]
     Active Substance: OMEPRAZOLE
     Indication: Gastrooesophageal reflux disease
     Dosage: 40 MG, CAPSULE,DELAYED RELEASE (ENTERIC COATED)
     Route: 048
     Dates: start: 20230602
  8. ALBUTEROL SULFATE [Concomitant]
     Active Substance: ALBUTEROL SULFATE
     Indication: Product used for unknown indication
     Dosage: TIME INTERVAL: 0.33333333 DAYS: 90 MCG/ACTUATION AEROSOL INHALER (HFA AEROSOL WITH ADAPTER (GRAM)
     Route: 055
     Dates: start: 20230602
  9. RANOLAZINE [Concomitant]
     Active Substance: RANOLAZINE
     Indication: Hypertension
     Dosage: ER 500 MG
     Dates: start: 20230602
  10. ESCITALOPRAM [Concomitant]
     Active Substance: ESCITALOPRAM OXALATE
     Indication: Depression
     Dates: start: 20230602
  11. FAMOTIDINE [Concomitant]
     Active Substance: FAMOTIDINE
     Indication: Dyspepsia
     Dosage: 20 MG
     Route: 048
     Dates: start: 20230602
  12. FLUDROCORTISONE [Concomitant]
     Active Substance: FLUDROCORTISONE
     Indication: Product used for unknown indication
     Dosage: 0.1 MG
     Route: 048
     Dates: start: 20230602
  13. BACLOFEN [Concomitant]
     Active Substance: BACLOFEN
     Indication: Muscle spasms
     Dosage: TIME INTERVAL: 0.33333333 DAYS: 10 MG
     Dates: start: 20230602
  14. DIPHENHYDRAMINE [Concomitant]
     Active Substance: DIPHENHYDRAMINE
     Indication: Pruritus
     Dosage: 50 MG
     Dates: start: 20230602
  15. FOLIC ACID [Concomitant]
     Active Substance: FOLIC ACID
     Indication: Supplementation therapy
     Dosage: 1 MG
     Route: 048
     Dates: start: 20230602
  16. LACTULOSE [Concomitant]
     Active Substance: LACTULOSE
     Indication: Constipation
     Dosage: 10 GRAM/15 ML. ORAL SOLUTION
     Route: 048
     Dates: start: 20230602
  17. MIDODRINE [Concomitant]
     Active Substance: MIDODRINE
     Indication: Hypotension
     Dosage: TIME INTERVAL: 0.33333333 DAYS: 10 MG
     Route: 048
     Dates: start: 20230602
  18. NITROGLYCERIN [Concomitant]
     Active Substance: NITROGLYCERIN
     Indication: Chest pain
     Dosage: 0.4 MG SUBLINGUAL TABLET, AS NEEDED
     Route: 048
     Dates: start: 20230602
  19. SENNA [Concomitant]
     Active Substance: SENNA LEAF\SENNOSIDES\SENNOSIDES A AND B
     Indication: Bowel movement irregularity
     Dates: start: 20230602
  20. ACETAMINOPHEN AND CAFFEINE [Concomitant]
     Active Substance: ACETAMINOPHEN\CAFFEINE
     Indication: Product used for unknown indication
     Dosage: TIME INTERVAL: 0.16666667 DAYS
  21. DICYCLOMINE [Concomitant]
     Active Substance: DICYCLOMINE HYDROCHLORIDE
     Indication: Muscle spasms
     Dosage: 10 MG
     Dates: start: 20230602
  22. ASPIRIN [Concomitant]
     Active Substance: ASPIRIN
     Indication: Atrial fibrillation
     Dosage: 81 MG
     Route: 048
     Dates: start: 20230602
  23. BUSPIRONE [Concomitant]
     Active Substance: BUSPIRONE HYDROCHLORIDE
     Indication: Depression
     Dosage: 30 MG
     Route: 048
     Dates: start: 20230602
  24. XYZAL [Concomitant]
     Active Substance: LEVOCETIRIZINE DIHYDROCHLORIDE
     Indication: Hypersensitivity
     Dosage: 5MG
     Route: 048
     Dates: start: 20230602
  25. BISACODYL [Concomitant]
     Active Substance: BISACODYL
     Indication: Constipation
     Dosage: 10 MG 1 RECTAL RECTAL SUPPOSITORY
     Route: 054
     Dates: start: 20230602

REACTIONS (5)
  - Rib fracture [Recovered/Resolved]
  - Fall [Recovered/Resolved]
  - Upper limb fracture [Recovered/Resolved]
  - Wrist fracture [Recovered/Resolved]
  - Loss of consciousness [Recovered/Resolved]

NARRATIVE: CASE EVENT DATE: 20230430
